FAERS Safety Report 11944146 (Version 1)
Quarter: 2016Q1

REPORT INFORMATION
  Report Type: Report from Study
  Country: DE (occurrence: DE)
  Receive Date: 20160125
  Receipt Date: 20160125
  Transmission Date: 20160526
  Serious: Yes (Other)
  Sender: FDA-Public Use
  Company Number: DE-BAYER-2015-433838

PATIENT
  Age: 46 Year
  Sex: Female

DRUGS (1)
  1. BETAFERON [Suspect]
     Active Substance: INTERFERON BETA-1B
     Indication: MULTIPLE SCLEROSIS
     Dosage: 250 ?G, QOD
     Route: 058
     Dates: start: 20150518

REACTIONS (4)
  - Influenza [None]
  - Liver function test increased [Recovered/Resolved]
  - Blood glucose increased [Not Recovered/Not Resolved]
  - Depression [None]

NARRATIVE: CASE EVENT DATE: 20150815
